FAERS Safety Report 5084918-5 (Version None)
Quarter: 2006Q3

REPORT INFORMATION
  Report Type: 
  Country: None (occurrence: None)
  Receive Date: 20060821
  Receipt Date: 20060817
  Transmission Date: 20061208
  Serious: Yes (Hospitalization)
  Sender: FDA-Public Use
  Company Number: US-BOEHRINGER INGELHEIM PHARMACEUTICALS, INC.-2006-BP-09590BP

PATIENT
  Sex: Male

DRUGS (7)
  1. FLOMAX [Suspect]
     Route: 048
     Dates: start: 20040101
  2. NORVASC [Concomitant]
     Route: 048
  3. LISINOPRIL [Concomitant]
     Route: 048
  4. GLYBIZIDE [Concomitant]
     Route: 048
  5. METFORMIN [Concomitant]
     Route: 048
  6. GEMFIBROZIL [Concomitant]
     Route: 048
  7. LIPITOR [Concomitant]
     Route: 048

REACTIONS (1)
  - CYSTITIS [None]
